FAERS Safety Report 14291582 (Version 2)
Quarter: 2024Q4

REPORT INFORMATION
  Report Type: Spontaneous
  Country: US (occurrence: US)
  Receive Date: 20171215
  Receipt Date: 20241213
  Transmission Date: 20250115
  Serious: No
  Sender: NOVO NORDISK
  Company Number: US-NOVOPROD-537744

PATIENT
  Age: 88 Year
  Sex: Male

DRUGS (2)
  1. LEVEMIR [Suspect]
     Active Substance: INSULIN DETEMIR
     Indication: Type 2 diabetes mellitus
     Dosage: 5 U
     Route: 058
     Dates: start: 201703
  2. COUMADIN                           /00014802/ [Concomitant]
     Indication: Product used for unknown indication

REACTIONS (1)
  - Skin discolouration [Recovered/Resolved]
